FAERS Safety Report 5931397-9 (Version None)
Quarter: 2008Q4

REPORT INFORMATION
  Report Type: 
  Country: None (occurrence: None)
  Receive Date: 20081027
  Receipt Date: 20081015
  Transmission Date: 20090506
  Serious: Yes (Death)
  Sender: FDA-Public Use
  Company Number: JP-ROCHE-592956

PATIENT
  Age: 35 Year
  Sex: Female
  Weight: 49 kg

DRUGS (5)
  1. XELODA [Suspect]
     Indication: BREAST CANCER METASTATIC
     Dosage: REORTED AS 'XELODA 300'
     Route: 048
  2. HERCEPTIN [Suspect]
     Indication: BREAST CANCER METASTATIC
     Route: 041
  3. HERCEPTIN [Suspect]
     Route: 041
  4. GOSERELIN [Concomitant]
     Route: 058
  5. TAMOXIFEN CITRATE [Concomitant]
     Route: 048

REACTIONS (1)
  - DISEASE PROGRESSION [None]
